FAERS Safety Report 8103920-X (Version None)
Quarter: 2012Q1

REPORT INFORMATION
  Report Type: 
  Country: None (occurrence: None)
  Receive Date: 20120201
  Receipt Date: 20120125
  Transmission Date: 20120608
  Serious: Yes (Hospitalization)
  Sender: FDA-Public Use
  Company Number: DE-JNJFOC-20111013000

PATIENT
  Sex: Male

DRUGS (6)
  1. RISPERDAL [Suspect]
     Route: 048
     Dates: start: 20111010, end: 20111011
  2. ZYPREXA [Concomitant]
     Route: 048
     Dates: end: 20111011
  3. RISPERDAL [Suspect]
     Route: 048
     Dates: start: 20111008, end: 20111009
  4. RISPERDAL [Suspect]
     Indication: DEPRESSION
     Route: 048
     Dates: start: 20111012
  5. RISPERDAL [Suspect]
     Route: 048
     Dates: start: 20111007, end: 20111019
  6. CYMBALTA [Concomitant]
     Indication: DEPRESSION
     Route: 048
     Dates: start: 20110808

REACTIONS (1)
  - RETINAL VEIN OCCLUSION [None]
